FAERS Safety Report 5079874-X (Version None)
Quarter: 2006Q3

REPORT INFORMATION
  Report Type: 
  Country: None (occurrence: None)
  Receive Date: 20060809
  Receipt Date: 20060727
  Transmission Date: 20061208
  Serious: Yes (Life-Threatening)
  Sender: FDA-Public Use
  Company Number: MC200600519

PATIENT
  Age: 65 Year
  Sex: Male

DRUGS (3)
  1. ANGIOMAX [Suspect]
     Indication: ANGIOGRAM
     Dosage: BOLUS, IV BOLUS; SEE IMAGE
     Route: 040
     Dates: start: 20060727, end: 20060727
  2. ANGIOMAX [Suspect]
     Indication: ANGIOGRAM
     Dosage: BOLUS, IV BOLUS; SEE IMAGE
     Route: 040
     Dates: start: 20060727, end: 20060727
  3. VISIPAQUE /SWE/ (TROMETAMOL, IODIXANOL) [Concomitant]

REACTIONS (3)
  - CARDIAC ARREST [None]
  - CHEST PAIN [None]
  - DRUG HYPERSENSITIVITY [None]
